FAERS Safety Report 5817304-8 (Version None)
Quarter: 2008Q3

REPORT INFORMATION
  Report Type: 
  Country: None (occurrence: None)
  Receive Date: 20080722
  Receipt Date: 20080718
  Transmission Date: 20090109
  Serious: Yes (Life-Threatening)
  Sender: FDA-Public Use
  Company Number: B0529806A

PATIENT
  Age: 55 Year
  Sex: Male

DRUGS (8)
  1. ZIAGEN [Suspect]
     Indication: ACQUIRED IMMUNODEFICIENCY SYNDROME
     Dosage: 600MG PER DAY
     Route: 048
     Dates: start: 20011007, end: 20080209
  2. EPIVIR [Suspect]
     Indication: ACQUIRED IMMUNODEFICIENCY SYNDROME
     Dosage: 50MG PER DAY
     Route: 048
     Dates: start: 20010515, end: 20010919
  3. EPIVIR [Suspect]
     Dosage: 50MG PER DAY
     Route: 048
     Dates: start: 20011007, end: 20080209
  4. STOCRIN [Suspect]
     Indication: ACQUIRED IMMUNODEFICIENCY SYNDROME
     Dosage: 600MG PER DAY
     Route: 048
     Dates: start: 20011007, end: 20080209
  5. BAKTAR [Concomitant]
     Indication: ANTIFUNGAL PROPHYLAXIS
     Dosage: 1000MG PER DAY
     Route: 048
     Dates: start: 20070411, end: 20070418
  6. CLONAZEPAM [Concomitant]
  7. ANTIHYPERTENSIVE [Concomitant]
     Indication: HYPERTENSION
  8. UNKNOWN INSOMNIA MEDICATION [Concomitant]
     Indication: INSOMNIA

REACTIONS (6)
  - BRAIN OEDEMA [None]
  - CEREBRAL HAEMORRHAGE [None]
  - HYPERTENSION [None]
  - INSOMNIA [None]
  - NEUROPATHY PERIPHERAL [None]
  - SEPSIS [None]
